FAERS Safety Report 5268093-X (Version None)
Quarter: 2007Q1

REPORT INFORMATION
  Report Type: 
  Country: None (occurrence: None)
  Receive Date: 20070314
  Receipt Date: 20070314
  Transmission Date: 20070707
  Serious: Yes (Death)
  Sender: FDA-Public Use
  Company Number: None

PATIENT
  Sex: Female
  Weight: 65.7716 kg

DRUGS (14)
  1. DURAGESIC-12 [Suspect]
     Indication: OVARIAN CANCER
     Dosage: 12.5 MEQ 72 HOURS CUTANEOUS
     Route: 003
     Dates: start: 20070116, end: 20070130
  2. DURAGESIC-12 [Suspect]
     Indication: PAIN MANAGEMENT
     Dosage: 12.5 MEQ 72 HOURS CUTANEOUS
     Route: 003
     Dates: start: 20070116, end: 20070130
  3. DURAGESIC-25 [Suspect]
     Indication: OVARIAN CANCER
     Dosage: 25.0 MEG 72 HOURS CUTANEOUS
     Route: 003
     Dates: start: 20070130, end: 20070202
  4. DURAGESIC-25 [Suspect]
     Indication: PAIN MANAGEMENT
     Dosage: 25.0 MEG 72 HOURS CUTANEOUS
     Route: 003
     Dates: start: 20070130, end: 20070202
  5. ANTIVAN [Concomitant]
  6. VICODIN [Concomitant]
  7. TRAMADOL HCL [Concomitant]
  8. HALDOL [Concomitant]
  9. REGLAN [Concomitant]
  10. LORAZEPAN [Concomitant]
  11. OXYGEN [Concomitant]
  12. MORPHINE SULFATE [Concomitant]
  13. ACETAMINOPHEN AND HYDROCODONE BITARTRATE [Concomitant]
  14. PHENERGAN HCL [Concomitant]

REACTIONS (1)
  - COMA [None]
